FAERS Safety Report 24002584 (Version 2)
Quarter: 2024Q4

REPORT INFORMATION
  Report Type: Spontaneous
  Country: US (occurrence: US)
  Receive Date: 20240623
  Receipt Date: 20241110
  Transmission Date: 20250115
  Serious: No
  Sender: BAUSCH AND LOMB
  Company Number: US-BAUSCHBL-2024BNL028585

PATIENT
  Age: 79 Year
  Sex: Male

DRUGS (2)
  1. XIIDRA [Suspect]
     Active Substance: LIFITEGRAST
     Indication: Macular degeneration
     Route: 047
  2. XIIDRA [Suspect]
     Active Substance: LIFITEGRAST
     Indication: Dry eye

REACTIONS (4)
  - Vision blurred [Unknown]
  - Eye irritation [Unknown]
  - Inappropriate schedule of product administration [Unknown]
  - Product packaging quantity issue [Unknown]
